FAERS Safety Report 7135417-8 (Version None)
Quarter: 2010Q4

REPORT INFORMATION
  Report Type: 
  Country: None (occurrence: None)
  Receive Date: 20101203
  Receipt Date: 20101123
  Transmission Date: 20110411
  Serious: Yes (Other)
  Sender: FDA-Public Use
  Company Number: PHHY2010BR23469

PATIENT
  Age: 69 Year
  Sex: Female

DRUGS (6)
  1. DIOVAN [Suspect]
     Indication: HYPERTENSION
     Dosage: 80 MG, 1 TABLET A DAY
     Route: 048
  2. DIOVAN [Suspect]
     Dosage: 160 MG, 1 TABLET A DAY
     Route: 048
  3. LIPITOR [Concomitant]
     Dosage: 10 MG, 1 TABLET AT NIGHT
     Route: 048
  4. LORAX [Concomitant]
     Dosage: 1 TABLET AT NIGHT
     Route: 048
  5. MOTILIUM [Concomitant]
     Indication: NAUSEA
     Dosage: 3 TIMES A DAY
     Route: 048
  6. NEXIUM [Concomitant]
     Indication: NAUSEA
     Dosage: 2 TABLETS A DAY (MORNING AND AFTERNOON)
     Route: 048

REACTIONS (6)
  - BREAST CANCER [None]
  - DIABETES MELLITUS [None]
  - HYPOTHYROIDISM [None]
  - MALIGNANT BREAST LUMP REMOVAL [None]
  - NAUSEA [None]
  - TACHYCARDIA [None]
